FAERS Safety Report 17756489 (Version 5)
Quarter: 2025Q1

REPORT INFORMATION
  Report Type: Spontaneous
  Country: US (occurrence: US)
  Receive Date: 20200507
  Receipt Date: 20250102
  Transmission Date: 20250408
  Serious: Yes (Other)
  Sender: PFIZER
  Company Number: US-PFIZER INC-2020181199

PATIENT
  Age: 65 Year
  Sex: Female

DRUGS (14)
  1. XELJANZ [Suspect]
     Active Substance: TOFACITINIB CITRATE
  2. SOLFENACIN [Concomitant]
  3. AMOXIL [Concomitant]
     Active Substance: AMOXICILLIN
  4. VITAMIN D2 [Concomitant]
     Active Substance: ERGOCALCIFEROL
  5. CORGARD [Concomitant]
     Active Substance: NADOLOL
  6. ALEVE [Concomitant]
     Active Substance: NAPROXEN SODIUM
  7. PRILOSEC [Concomitant]
     Active Substance: OMEPRAZOLE MAGNESIUM
  8. THERAGEN [Concomitant]
     Active Substance: CAPSAICIN
  9. VITAMIN B COMPLEX [Concomitant]
     Active Substance: CYANOCOBALAMIN\DEXPANTHENOL\NIACINAMIDE\PYRIDOXINE HYDROCHLORIDE\RIBOFLAVIN 5^-PHOSPHATE SODIUM\THIA
  10. METAMUCIL [Concomitant]
     Active Substance: PLANTAGO SEED
  11. POTASSIUM [Concomitant]
     Active Substance: POTASSIUM
  12. VITAMIN C [Concomitant]
     Active Substance: ASCORBIC ACID
  13. ATORVASTATIN [Concomitant]
     Active Substance: ATORVASTATIN
  14. LISINOPRIL [Concomitant]
     Active Substance: LISINOPRIL

REACTIONS (3)
  - Mental impairment [Recovered/Resolved]
  - Off label use [Unknown]
  - Bladder disorder [Unknown]
